FAERS Safety Report 17947963 (Version 2)
Quarter: 2020Q4

REPORT INFORMATION
  Report Type: Spontaneous
  Country: US (occurrence: US)
  Receive Date: 20200626
  Receipt Date: 20201120
  Transmission Date: 20210113
  Serious: No
  Sender: FDA-Public Use
  Company Number: US-AMGEN-USASP2020082613

PATIENT
  Age: 54 Year
  Sex: Female

DRUGS (1)
  1. ENBREL [Suspect]
     Active Substance: ETANERCEPT
     Indication: PRODUCT USED FOR UNKNOWN INDICATION
     Dosage: UNK
     Route: 065

REACTIONS (8)
  - Joint swelling [Unknown]
  - Mobility decreased [Unknown]
  - Gait disturbance [Unknown]
  - Pain [Unknown]
  - Fatigue [Recovering/Resolving]
  - Peripheral swelling [Unknown]
  - Erythema [Unknown]
  - Sensitivity to weather change [Unknown]
